FAERS Safety Report 16722976 (Version 2)
Quarter: 2019Q3

REPORT INFORMATION
  Report Type: Report from Study
  Country: DE (occurrence: DE)
  Receive Date: 20190821
  Receipt Date: 20190909
  Transmission Date: 20191005
  Serious: Yes (Hospitalization)
  Sender: FDA-Public Use
  Company Number: DE-BIOGEN-2019BI00775506

PATIENT
  Age: 45 Year
  Sex: Female

DRUGS (1)
  1. AVONEX [Suspect]
     Active Substance: INTERFERON BETA-1A
     Indication: MULTIPLE SCLEROSIS
     Route: 030
     Dates: start: 20181026, end: 201904

REACTIONS (11)
  - Injection site discolouration [Unknown]
  - Injection site erythema [Unknown]
  - Myositis [Recovered/Resolved with Sequelae]
  - Injection site inflammation [Recovered/Resolved with Sequelae]
  - Lymphatic obstruction [Not Recovered/Not Resolved]
  - Injection site swelling [Unknown]
  - Injection site reaction [Recovered/Resolved with Sequelae]
  - Osteoarthritis [Not Recovered/Not Resolved]
  - Fear of injection [Not Recovered/Not Resolved]
  - Monoplegia [Recovered/Resolved with Sequelae]
  - Injection site hypoaesthesia [Not Recovered/Not Resolved]

NARRATIVE: CASE EVENT DATE: 201904
